FAERS Safety Report 8028746-7 (Version None)
Quarter: 2012Q1

REPORT INFORMATION
  Report Type: 
  Country: None (occurrence: None)
  Receive Date: 20120106
  Receipt Date: 20111228
  Transmission Date: 20120608
  Serious: Yes (Hospitalization, Disabling)
  Sender: FDA-Public Use
  Company Number: US-MERCK-1106USA01022

PATIENT
  Age: 51 Year
  Sex: Female
  Weight: 62 kg

DRUGS (3)
  1. FOSAMAX [Suspect]
     Indication: OSTEOPOROSIS
     Route: 048
     Dates: start: 19980101
  2. FOSAMAX [Suspect]
     Route: 048
     Dates: start: 20070701
  3. FOSAMAX [Suspect]
     Route: 048
     Dates: end: 20100501

REACTIONS (13)
  - FEMUR FRACTURE [None]
  - BREAST CALCIFICATIONS [None]
  - RENAL CYST [None]
  - ANGIOMYOLIPOMA [None]
  - FRACTURE NONUNION [None]
  - HYPOKALAEMIA [None]
  - HYPERTENSION [None]
  - COLONIC POLYP [None]
  - FALL [None]
  - INAPPROPRIATE SCHEDULE OF DRUG ADMINISTRATION [None]
  - SJOGREN'S SYNDROME [None]
  - IMPAIRED HEALING [None]
  - HYPERCHOLESTEROLAEMIA [None]
